FAERS Safety Report 10594105 (Version 4)
Quarter: 2015Q1

REPORT INFORMATION
  Report Type: Report from Study
  Country: KR (occurrence: KR)
  Receive Date: 20141119
  Receipt Date: 20150115
  Transmission Date: 20150720
  Serious: Yes (Hospitalization)
  Sender: FDA-Public Use
  Company Number: KR-TEVA-523345USA

PATIENT
  Age: 68 Year
  Sex: Male
  Weight: 50.5 kg

DRUGS (12)
  1. RITUXIMAB [Suspect]
     Active Substance: RITUXIMAB
     Indication: MANTLE CELL LYMPHOMA
     Dosage: 562.5 MG, 1 IN 8 WEEK
     Route: 042
     Dates: start: 20140212
  2. IBRUTINIB [Suspect]
     Active Substance: IBRUTINIB
     Dosage: UNK UNK, UNKNOWN FREQ.
     Route: 048
     Dates: start: 20141124
  3. RITUXIMAB [Suspect]
     Active Substance: RITUXIMAB
     Dosage: 562.5 MG, 1 IN 8 WEEK
     Route: 042
     Dates: start: 20140912
  4. BENDAMUSTINE HYDROCHLORIDE [Suspect]
     Active Substance: BENDAMUSTINE HYDROCHLORIDE
     Dosage: 135 MG, 1 IN 4 WEEK
     Route: 042
     Dates: start: 20140717
  5. RITUXIMAB [Suspect]
     Active Substance: RITUXIMAB
     Dosage: 562.5 MG, 1 IN 8 WEEK
     Route: 042
     Dates: start: 20141112
  6. IBRUTINIB [Suspect]
     Active Substance: IBRUTINIB
     Indication: MANTLE CELL LYMPHOMA
     Dosage: 560 MG, 1 DAY
     Route: 048
     Dates: start: 20140212, end: 20141029
  7. ASPIRIN. [Concomitant]
     Active Substance: ASPIRIN
     Indication: HYPERTENSION
     Route: 048
     Dates: start: 2004
  8. ATORVASTATIN [Concomitant]
     Active Substance: ATORVASTATIN
     Indication: ISCHAEMIC HEART DISEASE PROPHYLAXIS
     Route: 048
     Dates: start: 20140608
  9. BENDAMUSTINE HYDROCHLORIDE [Suspect]
     Active Substance: BENDAMUSTINE HYDROCHLORIDE
     Indication: MANTLE CELL LYMPHOMA
     Dosage: 135 MG, 1 IN 4 WEEK
     Route: 042
     Dates: start: 20140212
  10. CLOPIDOGREL [Concomitant]
     Active Substance: CLOPIDOGREL BISULFATE
     Indication: ISCHAEMIC HEART DISEASE PROPHYLAXIS
     Route: 048
     Dates: start: 20140608
  11. JANUMET [Concomitant]
     Active Substance: METFORMIN HYDROCHLORIDE\SITAGLIPTIN PHOSPHATE
     Indication: DIABETES MELLITUS
     Route: 065
     Dates: start: 2000
  12. CELIPROLOL HCL [Concomitant]
     Active Substance: CELIPROLOL
     Indication: ISCHAEMIC HEART DISEASE PROPHYLAXIS
     Route: 048
     Dates: start: 20140608

REACTIONS (2)
  - Gastric perforation [Not Recovered/Not Resolved]
  - Gastric ulcer [Not Recovered/Not Resolved]

NARRATIVE: CASE EVENT DATE: 20141024
